FAERS Safety Report 25796116 (Version 1)
Quarter: 2025Q3

REPORT INFORMATION
  Report Type: Spontaneous
  Country: US (occurrence: None)
  Receive Date: 20250911
  Receipt Date: 20250911
  Transmission Date: 20251020
  Serious: Yes (Other)
  Sender: FDA-CTU
  Company Number: None

PATIENT
  Age: 58 Year
  Sex: Female

DRUGS (3)
  1. CYANOCOBALAMIN\NALTREXONE\TOPIRAMATE [Suspect]
     Active Substance: CYANOCOBALAMIN\NALTREXONE\TOPIRAMATE
     Indication: Weight decreased
     Dosage: FREQUENCY : EVERY OTHER DAY;?
     Route: 048
     Dates: start: 20250709, end: 20250724
  2. BUPROPION [Suspect]
     Active Substance: BUPROPION
     Dates: start: 20250709, end: 20250724
  3. ONDANSETRON [Suspect]
     Active Substance: ONDANSETRON
     Dates: start: 20250709, end: 20250724

REACTIONS (1)
  - Gastritis [None]

NARRATIVE: CASE EVENT DATE: 20250724
